FAERS Safety Report 4501510-9 (Version None)
Quarter: 2004Q4

REPORT INFORMATION
  Report Type: 
  Country: None (occurrence: None)
  Receive Date: 20041109
  Receipt Date: 20041027
  Transmission Date: 20050328
  Serious: Yes (Hospitalization)
  Sender: FDA-Public Use
  Company Number: 2004238917ES

PATIENT
  Age: 58 Year
  Sex: Female

DRUGS (4)
  1. DOXORUBICIN HYDROCHLORIDE [Suspect]
     Indication: BREAST CANCER
     Dosage: 70.3 MG, CYCLE 6, IV
     Route: 042
     Dates: start: 20040908, end: 20040908
  2. TAXOL [Suspect]
     Indication: BREAST CANCER
     Dosage: 263.6 MG, CYCLE 6, IV
     Route: 042
     Dates: start: 20040908, end: 20040908
  3. GEMZAR [Suspect]
     Indication: BREAST CANCER
     Dosage: 3515.3 MG, CYCLE 6, IV
     Route: 042
     Dates: start: 20040908, end: 20040908
  4. GANCICLOVIR SODIUM [Concomitant]

REACTIONS (11)
  - DRUG TOXICITY [None]
  - DYSPHAGIA [None]
  - HAEMOGLOBIN DECREASED [None]
  - INFECTION [None]
  - INTERSTITIAL LUNG DISEASE [None]
  - LUNG DISORDER [None]
  - MUCOSAL INFLAMMATION [None]
  - NEUTROPHIL COUNT INCREASED [None]
  - ODYNOPHAGIA [None]
  - PNEUMONIA PRIMARY ATYPICAL [None]
  - TONGUE ULCERATION [None]
